FAERS Safety Report 10077739 (Version 2)
Quarter: 2014Q2

REPORT INFORMATION
  Report Type: Spontaneous
  Country: FR (occurrence: FR)
  Receive Date: 20140414
  Receipt Date: 20140414
  Transmission Date: 20141212
  Serious: Yes (Hospitalization)
  Sender: FDA-Public Use
  Company Number: FR-ELI_LILLY_AND_COMPANY-FR201312003156

PATIENT
  Age: 58 Year
  Sex: Female
  Weight: 78 kg

DRUGS (7)
  1. FORSTEO [Suspect]
     Indication: OSTEOPOROSIS
     Dosage: 20 UG, QD
     Route: 058
     Dates: start: 201304
  2. VENTOLINE                          /00139501/ [Concomitant]
     Indication: ASTHMA
     Dosage: 1 DF, QD
     Route: 065
  3. SEREVENT [Concomitant]
     Indication: ASTHMA
     Dosage: 2 DF, QD
     Route: 065
  4. SINGULAIR [Concomitant]
     Indication: ASTHMA
     Dosage: 1 DF, QD
  5. BIPRETERAX                         /01421201/ [Concomitant]
     Indication: HYPERTENSION
     Dosage: 1 DF, QD
     Route: 065
  6. CALTRATE +VIT.D [Concomitant]
     Indication: PRODUCT USED FOR UNKNOWN INDICATION
     Dosage: 1 DF, QD
     Route: 065
  7. VITAMIN D [Concomitant]
     Indication: PRODUCT USED FOR UNKNOWN INDICATION
     Dosage: 1 DF, QD
     Route: 065

REACTIONS (5)
  - Weight increased [Not Recovered/Not Resolved]
  - Dyspnoea [Not Recovered/Not Resolved]
  - Fatigue [Not Recovered/Not Resolved]
  - Hypertension [Not Recovered/Not Resolved]
  - Weight increased [Unknown]
